FAERS Safety Report 22332636 (Version 1)
Quarter: 2023Q2

REPORT INFORMATION
  Report Type: Spontaneous
  Country: US (occurrence: None)
  Receive Date: 20230516
  Receipt Date: 20230516
  Transmission Date: 20230722
  Serious: Yes (Other)
  Sender: FDA-Public Use
  Company Number: None

PATIENT
  Age: 58 Year
  Sex: Female

DRUGS (1)
  1. COSENTYX [Suspect]
     Active Substance: SECUKINUMAB
     Indication: Psoriatic arthropathy
     Dates: start: 20230307

REACTIONS (3)
  - Neoplasm malignant [None]
  - Amplified musculoskeletal pain syndrome [None]
  - Therapy cessation [None]

NARRATIVE: CASE EVENT DATE: 20230516
